FAERS Safety Report 25444199 (Version 2)
Quarter: 2025Q3

REPORT INFORMATION
  Report Type: Spontaneous
  Country: US (occurrence: US)
  Receive Date: 20250617
  Receipt Date: 20250703
  Transmission Date: 20251020
  Serious: No
  Sender: ABBVIE
  Company Number: US-ABBVIE-6321422

PATIENT
  Age: 56 Year
  Sex: Female
  Weight: 52 kg

DRUGS (4)
  1. CANASA [Suspect]
     Active Substance: MESALAMINE
     Indication: Proctitis ulcerative
     Dosage: FORM STRENGTH: 100 MILLIGRAM
     Route: 054
     Dates: start: 202505
  2. CANASA [Suspect]
     Active Substance: MESALAMINE
     Indication: Proctitis ulcerative
     Dosage: FORM STRENGTH: 100 MILLIGRAM
     Route: 054
     Dates: start: 201810, end: 2020
  3. ADVIL [Concomitant]
     Active Substance: IBUPROFEN
     Indication: Pain
  4. MESALAMINE [Suspect]
     Active Substance: MESALAMINE
     Indication: Product used for unknown indication
     Route: 065

REACTIONS (3)
  - Rectal haemorrhage [Recovered/Resolved]
  - Diarrhoea [Recovered/Resolved]
  - Anal pruritus [Recovered/Resolved]

NARRATIVE: CASE EVENT DATE: 20250326
